FAERS Safety Report 25038668 (Version 3)
Quarter: 2025Q2

REPORT INFORMATION
  Report Type: Spontaneous
  Country: JP (occurrence: JP)
  Receive Date: 20250304
  Receipt Date: 20250516
  Transmission Date: 20250717
  Serious: Yes (Hospitalization, Other)
  Sender: TAKEDA
  Company Number: JP-TAKEDA-2025TJP000340

PATIENT
  Age: 8 Decade

DRUGS (3)
  1. FRUZAQLA [Suspect]
     Active Substance: FRUQUINTINIB
     Indication: Colon cancer
     Dosage: 5 MILLIGRAM, QD
     Dates: start: 20241217
  2. FRUZAQLA [Suspect]
     Active Substance: FRUQUINTINIB
  3. FRUZAQLA [Suspect]
     Active Substance: FRUQUINTINIB

REACTIONS (3)
  - Cholangitis [Not Recovered/Not Resolved]
  - Jaundice cholestatic [Recovering/Resolving]
  - Liver function test abnormal [Not Recovered/Not Resolved]
